FAERS Safety Report 5752931-8 (Version None)
Quarter: 2008Q2

REPORT INFORMATION
  Report Type: 
  Country: None (occurrence: None)
  Receive Date: 20080529
  Receipt Date: 20080523
  Transmission Date: 20081010
  Serious: Yes (Other)
  Sender: FDA-Public Use
  Company Number: JP-PFIZER INC-2008044231

PATIENT
  Age: 73 Year
  Sex: Male

DRUGS (4)
  1. ATARAX [Suspect]
     Dosage: DAILY DOSE:1GRAM
     Route: 048
  2. DIFLUPREDNATE [Concomitant]
  3. GLYMESASON [Concomitant]
  4. MYSER [Concomitant]

REACTIONS (1)
  - DEMENTIA [None]
